FAERS Safety Report 19560037 (Version 1)
Quarter: 2021Q3

REPORT INFORMATION
  Report Type: Spontaneous
  Country: NL (occurrence: NL)
  Receive Date: 20210716
  Receipt Date: 20210716
  Transmission Date: 20211014
  Serious: Yes (Disabling)
  Sender: FDA-Public Use
  Company Number: NL-TEVA-2021-NL-1932669

PATIENT
  Age: 65 Year
  Sex: Male
  Weight: 65 kg

DRUGS (3)
  1. DOXAZOSINE TABLET MGA 4MG / BRAND NAME NOT SPECIFIED [Suspect]
     Active Substance: DOXAZOSIN MESYLATE
     Indication: HYPERTENSION
     Dosage: 1DF
     Dates: start: 20210620, end: 20210626
  2. AMLODIPINE [Concomitant]
     Active Substance: AMLODIPINE BESYLATE
     Dosage: THERAPY START DATE ASKU, THERAPY END DATE ASKU, 10 MG
  3. ACETYLSALICYLZUUR TABLET  80MG / BRAND NAME NOT SPECIFIED [Concomitant]
     Active Substance: ASPIRIN
     Dosage: THERAPY START DATE ASKU, THERAPY END DATE ASKU, 80 MG

REACTIONS (2)
  - Pain in extremity [Recovered/Resolved]
  - Poor peripheral circulation [Recovered/Resolved]

NARRATIVE: CASE EVENT DATE: 20210622
